FAERS Safety Report 8548332-X (Version None)
Quarter: 2012Q3

REPORT INFORMATION
  Report Type: 
  Country: None (occurrence: None)
  Receive Date: 20120730
  Receipt Date: 20120724
  Transmission Date: 20120928
  Serious: Yes (Other)
  Sender: FDA-Public Use
  Company Number: US-AMGEN-USASP2012046178

PATIENT
  Age: 44 Year
  Sex: Female

DRUGS (1)
  1. ENBREL [Suspect]
     Indication: ANKYLOSING SPONDYLITIS
     Dosage: 50 MG, QWK
     Dates: start: 20120205

REACTIONS (7)
  - DIARRHOEA [None]
  - CARDIAC FAILURE [None]
  - FLUID RETENTION [None]
  - ARTERIOSPASM CORONARY [None]
  - CARDITIS [None]
  - WEIGHT DECREASED [None]
  - FATIGUE [None]
